FAERS Safety Report 9748603 (Version 2)
Quarter: 2013Q4

REPORT INFORMATION
  Report Type: Spontaneous
  Country: US (occurrence: US)
  Receive Date: 20131212
  Receipt Date: 20131220
  Transmission Date: 20140711
  Serious: No
  Sender: FDA-Public Use
  Company Number: US-TEVA-450245USA

PATIENT
  Age: 18 Year
  Sex: Female
  Weight: 70.82 kg

DRUGS (2)
  1. PLAN B ONE-STEP [Suspect]
     Indication: POST COITAL CONTRACEPTION
     Dosage: 1.5 MILLIGRAM DAILY;
     Route: 048
     Dates: start: 20131202, end: 20131202
  2. NAPROXEN [Concomitant]
     Indication: DYSMENORRHOEA

REACTIONS (3)
  - Abnormal faeces [Recovered/Resolved]
  - Vaginal discharge [Recovered/Resolved]
  - Abdominal pain [Recovered/Resolved]
